FAERS Safety Report 9445083 (Version 1)
Quarter: 2013Q3

REPORT INFORMATION
  Report Type: Spontaneous
  Country: US (occurrence: None)
  Receive Date: 20130801
  Receipt Date: 20130801
  Transmission Date: 20140515
  Serious: Yes (Other)
  Sender: FDA-Public Use
  Company Number: 2010022144

PATIENT
  Sex: Female

DRUGS (2)
  1. VIVAGLOBIN [Suspect]
     Dosage: 80 ML ONCE VIA 6 SITES IN ??-???-2008 SUBCUTANEOUS
     Route: 058
  2. TOPAMAX (TOPIRAMATE) [Concomitant]

REACTIONS (2)
  - Headache [None]
  - Meningitis aseptic [None]
